FAERS Safety Report 10601490 (Version 2)
Quarter: 2014Q4

REPORT INFORMATION
  Report Type: Report from Study
  Country: JP (occurrence: JP)
  Receive Date: 20141124
  Receipt Date: 20141209
  Transmission Date: 20150529
  Serious: Yes (Death)
  Sender: FDA-Public Use
  Company Number: JP-PFIZER INC-2014317012

PATIENT
  Age: 56 Year
  Sex: Male
  Weight: 64 kg

DRUGS (8)
  1. TEMSIROLIMUS [Suspect]
     Active Substance: TEMSIROLIMUS
     Dosage: 25 MG, 1X/DAY
     Route: 041
     Dates: start: 20110407, end: 20110407
  2. TEMSIROLIMUS [Suspect]
     Active Substance: TEMSIROLIMUS
     Dosage: 25 MG, 1X/DAY
     Route: 041
     Dates: start: 20110215, end: 20110215
  3. TEMSIROLIMUS [Suspect]
     Active Substance: TEMSIROLIMUS
     Dosage: 25 MG, 1X/DAY
     Route: 041
     Dates: start: 20110315, end: 20110315
  4. TEMSIROLIMUS [Suspect]
     Active Substance: TEMSIROLIMUS
     Indication: METASTATIC RENAL CELL CARCINOMA
     Dosage: 25 MG, 1X/DAY
     Route: 041
     Dates: start: 20110118, end: 20110118
  5. TEMSIROLIMUS [Suspect]
     Active Substance: TEMSIROLIMUS
     Dosage: 25 MG, 1X/DAY
     Route: 041
     Dates: start: 20110308, end: 20110308
  6. TEMSIROLIMUS [Suspect]
     Active Substance: TEMSIROLIMUS
     Dosage: 25 MG, 1X/DAY
     Route: 041
     Dates: start: 20110131, end: 20110131
  7. TEMSIROLIMUS [Suspect]
     Active Substance: TEMSIROLIMUS
     Dosage: 25 MG, 1X/DAY
     Route: 041
     Dates: start: 20110225, end: 20110225
  8. TEMSIROLIMUS [Suspect]
     Active Substance: TEMSIROLIMUS
     Dosage: 25 MG, 1X/DAY
     Route: 041
     Dates: start: 20110324, end: 20110324

REACTIONS (2)
  - Disease progression [Fatal]
  - Metastatic renal cell carcinoma [Fatal]

NARRATIVE: CASE EVENT DATE: 20110510
